FAERS Safety Report 18853659 (Version 1)
Quarter: 2021Q1

REPORT INFORMATION
  Report Type: Other
  Country: CN (occurrence: CN)
  Receive Date: 20210205
  Receipt Date: 20210205
  Transmission Date: 20210420
  Serious: Yes (Other)
  Sender: FDA-Public Use
  Company Number: CN-ROCHE-2760281

PATIENT

DRUGS (7)
  1. GEMCITABINE. [Suspect]
     Active Substance: GEMCITABINE
     Indication: HER2 POSITIVE BREAST CANCER
     Dosage: ON DAY 1 AND DAY 8
     Route: 065
  2. PACLITAXEL. [Suspect]
     Active Substance: PACLITAXEL
     Indication: HER2 POSITIVE BREAST CANCER
     Route: 065
  3. LETROZOLE. [Suspect]
     Active Substance: LETROZOLE
     Indication: HER2 POSITIVE BREAST CANCER
     Dosage: FOR 21 DAYS
     Route: 065
  4. PYROTINIB [Suspect]
     Active Substance: PYROTINIB
     Indication: HER2 POSITIVE BREAST CANCER
     Route: 048
  5. TRASTUZUMAB. [Suspect]
     Active Substance: TRASTUZUMAB
     Indication: HER2 POSITIVE BREAST CANCER
     Route: 065
  6. VINORELBINE [Suspect]
     Active Substance: VINORELBINE TARTRATE
     Indication: HER2 POSITIVE BREAST CANCER
     Dosage: ON DAY 1 AND DAY 8
     Route: 065
  7. CAPECITABINE. [Suspect]
     Active Substance: CAPECITABINE
     Indication: HER2 POSITIVE BREAST CANCER
     Dosage: DAY 1 TO DAY 14
     Route: 065

REACTIONS (14)
  - Anaemia [Unknown]
  - Nausea [Unknown]
  - Vomiting [Unknown]
  - Palmar-plantar erythrodysaesthesia syndrome [Unknown]
  - Left ventricular failure [Unknown]
  - Alopecia [Unknown]
  - Granulocytopenia [Unknown]
  - Left ventricular dysfunction [Unknown]
  - Thrombocytopenia [Unknown]
  - Hepatic function abnormal [Unknown]
  - Drug resistance [Unknown]
  - Diarrhoea [Unknown]
  - Renal impairment [Unknown]
  - Stomatitis [Unknown]
